FAERS Safety Report 5227452-1 (Version None)
Quarter: 2007Q1

REPORT INFORMATION
  Report Type: 
  Country: None (occurrence: None)
  Receive Date: 20070202
  Receipt Date: 20070125
  Transmission Date: 20070707
  Serious: Yes (Hospitalization)
  Sender: FDA-Public Use
  Company Number: FRWYE340225JAN07

PATIENT
  Sex: Female

DRUGS (4)
  1. EFFEXOR XR [Suspect]
     Route: 048
     Dates: start: 20051201, end: 20061123
  2. GINKOR [Suspect]
     Route: 048
     Dates: start: 20051201, end: 20061123
  3. PRAVASTATIN [Suspect]
     Route: 048
     Dates: start: 20051201, end: 20061123
  4. ATARAX [Suspect]
     Route: 048
     Dates: start: 20051201, end: 20061123

REACTIONS (4)
  - ALPHA 2 GLOBULIN INCREASED [None]
  - BLOOD FIBRINOGEN INCREASED [None]
  - LICHENOID KERATOSIS [None]
  - POLYMERASE CHAIN REACTION [None]
